FAERS Safety Report 4800651-6 (Version None)
Quarter: 2005Q3

REPORT INFORMATION
  Report Type: 
  Country: None (occurrence: None)
  Receive Date: 20050929
  Receipt Date: 20050810
  Transmission Date: 20060218
  Serious: No
  Sender: FDA-Public Use
  Company Number: 05P-163-0308051-00

PATIENT
  Age: 42 Year
  Sex: Female
  Weight: 71.6683 kg

DRUGS (2)
  1. HUMIRA [Suspect]
     Indication: RHEUMATOID ARTHRITIS
     Dosage: 40 MG, 1 IN 2 WK, SUBCUTANEOUS
     Route: 058
     Dates: start: 20050725
  2. LEFLUNOMIDE [Concomitant]

REACTIONS (3)
  - PARAESTHESIA ORAL [None]
  - SINUS CONGESTION [None]
  - SINUS HEADACHE [None]
